FAERS Safety Report 5795710-8 (Version None)
Quarter: 2008Q2

REPORT INFORMATION
  Report Type: 
  Country: None (occurrence: None)
  Receive Date: 20080630
  Receipt Date: 20080624
  Transmission Date: 20081010
  Serious: Yes (Hospitalization, Other)
  Sender: FDA-Public Use
  Company Number: US-BOEHRINGER INGELHEIM GMBH, GERMANY-2007-BP-22539BP

PATIENT
  Age: 55 Year
  Sex: Male

DRUGS (4)
  1. MOBIC [Suspect]
     Indication: OSTEOARTHRITIS
     Route: 048
     Dates: start: 20070823
  2. STUDY DRUG [Suspect]
     Indication: OSTEOARTHRITIS
     Route: 048
     Dates: start: 20070811
  3. LORATADINE [Concomitant]
  4. CETIRIZINE+PSEUDOEPHEDRINE [Concomitant]

REACTIONS (16)
  - ANXIETY [None]
  - ASTHENIA [None]
  - BLOOD GLUCOSE INCREASED [None]
  - CAROTID ARTERY STENOSIS [None]
  - CAROTID BRUIT [None]
  - CELLULITIS [None]
  - CEREBRAL INFARCTION [None]
  - CEREBROVASCULAR ACCIDENT [None]
  - DYSLIPIDAEMIA [None]
  - HEADACHE [None]
  - HYPOAESTHESIA [None]
  - INJECTION SITE PHLEBITIS [None]
  - LEFT VENTRICULAR HYPERTROPHY [None]
  - MUSCULAR WEAKNESS [None]
  - PARAESTHESIA [None]
  - TRANSIENT ISCHAEMIC ATTACK [None]
